FAERS Safety Report 9455980 (Version 1)
Quarter: 2013Q3

REPORT INFORMATION
  Report Type: Spontaneous
  Country: US (occurrence: US)
  Receive Date: 20130813
  Receipt Date: 20130813
  Transmission Date: 20140515
  Serious: Yes (Hospitalization)
  Sender: FDA-Public Use
  Company Number: US-JNJFOC-20130803221

PATIENT
  Age: 70 Year
  Sex: Male

DRUGS (9)
  1. ZYTIGA [Suspect]
     Indication: PROSTATE CANCER
     Route: 048
  2. CARDIZEM [Concomitant]
     Route: 065
  3. PREDNISONE [Concomitant]
     Route: 048
  4. K-DUR [Concomitant]
     Route: 048
  5. LOPRESSOR [Concomitant]
     Route: 065
  6. LASIX [Concomitant]
     Route: 065
  7. BACTRIM [Concomitant]
     Route: 065
  8. XANAX [Concomitant]
     Route: 065
  9. PERCOCET [Concomitant]
     Route: 065

REACTIONS (2)
  - Osteomyelitis [Unknown]
  - Leg amputation [Unknown]
